FAERS Safety Report 6996667-4 (Version None)
Quarter: 2010Q3

REPORT INFORMATION
  Report Type: 
  Country: None (occurrence: None)
  Receive Date: 20100918
  Receipt Date: 20090908
  Transmission Date: 20110219
  Serious: No
  Sender: FDA-Public Use
  Company Number: US-WYE-H09904909

PATIENT
  Sex: Female
  Weight: 74 kg

DRUGS (1)
  1. PRISTIQ [Suspect]
     Indication: DEPRESSION
     Route: 048
     Dates: start: 20090612, end: 20090622

REACTIONS (4)
  - ANXIETY [None]
  - DIZZINESS [None]
  - DYSPNOEA [None]
  - NAUSEA [None]
